FAERS Safety Report 6346479-X (Version None)
Quarter: 2009Q3

REPORT INFORMATION
  Report Type: 
  Country: None (occurrence: None)
  Receive Date: 20090909
  Receipt Date: 20090901
  Transmission Date: 20100115
  Serious: Yes (Other)
  Sender: FDA-Public Use
  Company Number: AT-AMGEN-STX362864

PATIENT
  Sex: Male

DRUGS (1)
  1. MIMPARA [Suspect]

REACTIONS (2)
  - DYSPHAGIA [None]
  - NAUSEA [None]
